FAERS Safety Report 9724855 (Version 1)
Quarter: 2013Q4

REPORT INFORMATION
  Report Type: Spontaneous
  Country: NO (occurrence: NO)
  Receive Date: 20131202
  Receipt Date: 20131202
  Transmission Date: 20140711
  Serious: Yes (Other)
  Sender: FDA-Public Use
  Company Number: NO-ASTRAZENECA-2013SE85403

PATIENT
  Age: 29 Year
  Sex: Female

DRUGS (9)
  1. MARCAINE [Suspect]
     Indication: HEADACHE
     Route: 065
     Dates: start: 20120321, end: 20120321
  2. MARCAINE [Suspect]
     Indication: MIGRAINE
     Route: 065
     Dates: start: 20120321, end: 20120321
  3. MARCAINE [Suspect]
     Indication: HEADACHE
     Route: 065
     Dates: start: 20121011, end: 20121011
  4. MARCAINE [Suspect]
     Indication: MIGRAINE
     Route: 065
     Dates: start: 20121011, end: 20121011
  5. BOTOX [Suspect]
     Indication: HEADACHE
     Dosage: 100 U, SINGLE
     Dates: start: 20120831, end: 20120831
  6. BOTOX [Suspect]
     Indication: MIGRAINE
     Dosage: 100 U, SINGLE
     Dates: start: 20120831, end: 20120831
  7. ZOMIG [Concomitant]
     Indication: MIGRAINE
     Route: 048
     Dates: start: 2011
  8. METOPROLOL [Concomitant]
     Indication: MIGRAINE
     Dosage: PRN
  9. CATAFLAM [Concomitant]
     Indication: MIGRAINE

REACTIONS (25)
  - Facial pain [Recovering/Resolving]
  - Dysphonia [Unknown]
  - Dry mouth [Recovering/Resolving]
  - Toothache [Recovering/Resolving]
  - Insomnia [Recovering/Resolving]
  - Speech disorder [Recovering/Resolving]
  - Activities of daily living impaired [Unknown]
  - Aphasia [Unknown]
  - Vth nerve injury [Unknown]
  - Hypoaesthesia oral [Recovered/Resolved]
  - Paraesthesia oral [Recovered/Resolved]
  - Hypoaesthesia oral [Recovered/Resolved]
  - Dermatitis [Unknown]
  - Neck pain [Unknown]
  - Amnesia [Unknown]
  - Feeling abnormal [Unknown]
  - Muscle tightness [Unknown]
  - Adverse drug reaction [Unknown]
  - Hypometabolism [Unknown]
  - Facial paresis [Unknown]
  - Dizziness [Unknown]
  - Hypoaesthesia [Unknown]
  - Nausea [Unknown]
  - Tremor [Unknown]
  - Off label use [Unknown]
